FAERS Safety Report 9246978 (Version 1)
Quarter: 2013Q2

REPORT INFORMATION
  Report Type: Spontaneous
  Country: US (occurrence: US)
  Receive Date: 20130422
  Receipt Date: 20130422
  Transmission Date: 20140414
  Serious: No
  Sender: FDA-Public Use
  Company Number: US-009507513-1304USA007922

PATIENT
  Sex: Male

DRUGS (2)
  1. PROPECIA [Suspect]
     Indication: ALOPECIA
     Dosage: 1 TABLET, UNK
     Route: 048
     Dates: start: 2003
  2. PROPECIA [Suspect]
     Dosage: HALF OF A TABLET, UNK
     Route: 048

REACTIONS (2)
  - Ejaculation failure [Recovered/Resolved]
  - Wrong technique in drug usage process [Unknown]
